FAERS Safety Report 16245198 (Version 1)
Quarter: 2019Q2

REPORT INFORMATION
  Report Type: Spontaneous
  Country: FR (occurrence: FR)
  Receive Date: 20190426
  Receipt Date: 20190426
  Transmission Date: 20190711
  Serious: Yes (Life-Threatening)
  Sender: FDA-Public Use
  Company Number: PHHY2019FR095199

PATIENT
  Age: 74 Year
  Sex: Male
  Weight: 83.4 kg

DRUGS (3)
  1. XARELTO [Suspect]
     Active Substance: RIVAROXABAN
     Indication: CARDIOVASCULAR EVENT PROPHYLAXIS
     Dosage: 1 DF, QD
     Route: 048
     Dates: start: 201901, end: 20190401
  2. BISOPROLOL [Suspect]
     Active Substance: BISOPROLOL
     Indication: CARDIAC FAILURE
     Dosage: 1 DF, QD
     Route: 048
     Dates: start: 201901, end: 20190401
  3. KARDEGIC [Suspect]
     Active Substance: ASPIRIN DL-LYSINE
     Indication: CARDIOVASCULAR EVENT PROPHYLAXIS
     Dosage: 1 DF, QD
     Route: 048
     Dates: start: 201901, end: 20190401

REACTIONS (2)
  - Hypovolaemic shock [Recovered/Resolved]
  - Gastrointestinal haemorrhage [Recovered/Resolved]

NARRATIVE: CASE EVENT DATE: 20190401
